FAERS Safety Report 18172468 (Version 1)
Quarter: 2020Q3

REPORT INFORMATION
  Report Type: Spontaneous
  Country: ES (occurrence: ES)
  Receive Date: 20200820
  Receipt Date: 20200820
  Transmission Date: 20201103
  Serious: Yes (Hospitalization, Other)
  Sender: FDA-Public Use
  Company Number: ES-SUN PHARMACEUTICAL INDUSTRIES LTD-2019R1-219427

PATIENT
  Age: 36 Year
  Sex: Male

DRUGS (1)
  1. OXYCODONE [Suspect]
     Active Substance: OXYCODONE
     Indication: SPINAL PAIN
     Dosage: 10 MILLIGRAM, DAILY
     Route: 065

REACTIONS (5)
  - Abnormal behaviour [Recovered/Resolved]
  - Psychotic disorder [Recovered/Resolved]
  - Hallucination, olfactory [Recovered/Resolved]
  - Withdrawal syndrome [Recovered/Resolved]
  - Delusion [Recovered/Resolved]
